FAERS Safety Report 16674712 (Version 2)
Quarter: 2019Q3

REPORT INFORMATION
  Report Type: Report from Study
  Country: US (occurrence: US)
  Receive Date: 20190806
  Receipt Date: 20190826
  Transmission Date: 20191004
  Serious: Yes (Death, Hospitalization)
  Sender: FDA-Public Use
  Company Number: US-ACTELION-A-NJ2019-193993

PATIENT
  Age: 70 Year
  Sex: Female

DRUGS (37)
  1. ALLEGRA [Concomitant]
     Active Substance: FEXOFENADINE HYDROCHLORIDE
  2. GABAPENTIN. [Concomitant]
     Active Substance: GABAPENTIN
  3. SPIRIVA [Concomitant]
     Active Substance: TIOTROPIUM BROMIDE MONOHYDRATE
  4. VOLTAREN [Concomitant]
     Active Substance: DICLOFENAC SODIUM
  5. ASPIRIN. [Concomitant]
     Active Substance: ASPIRIN
  6. DIGOXIN. [Concomitant]
     Active Substance: DIGOXIN
  7. IRON [Concomitant]
     Active Substance: IRON
  8. LEVEMIR [Concomitant]
     Active Substance: INSULIN DETEMIR
  9. LINZESS [Concomitant]
     Active Substance: LINACLOTIDE
  10. CONSTULOSE [Concomitant]
     Active Substance: LACTULOSE
  11. CRANBERRY. [Concomitant]
     Active Substance: CRANBERRY
  12. MIRALAX [Concomitant]
     Active Substance: POLYETHYLENE GLYCOL 3350
  13. TRINTELLIX [Concomitant]
     Active Substance: VORTIOXETINE HYDROBROMIDE
  14. TRACLEER [Suspect]
     Active Substance: BOSENTAN
     Indication: PULMONARY ARTERIAL HYPERTENSION
     Dosage: 125 MG, BID
     Route: 048
     Dates: start: 20180201
  15. LOSARTAN. [Concomitant]
     Active Substance: LOSARTAN
  16. NEXIUM [Concomitant]
     Active Substance: ESOMEPRAZOLE MAGNESIUM
  17. NOVOLOG [Concomitant]
     Active Substance: INSULIN ASPART
  18. CARISOPRODOL. [Concomitant]
     Active Substance: CARISOPRODOL
  19. COENZYME Q10 [Concomitant]
     Active Substance: UBIDECARENONE
  20. KEPPRA [Concomitant]
     Active Substance: LEVETIRACETAM
  21. METOCLOPRAM [Concomitant]
     Active Substance: METOCLOPRAMIDE
  22. TORSEMIDE. [Concomitant]
     Active Substance: TORSEMIDE
  23. UPTRAVI [Suspect]
     Active Substance: SELEXIPAG
     Indication: PULMONARY ARTERIAL HYPERTENSION
     Dosage: 1600 MCG, BID
     Route: 048
     Dates: start: 201707
  24. ALBUTEROL. [Concomitant]
     Active Substance: ALBUTEROL
  25. ASMANEX [Concomitant]
     Active Substance: MOMETASONE FUROATE
  26. LORAZEPAM. [Concomitant]
     Active Substance: LORAZEPAM
  27. NITROFUR [Concomitant]
     Active Substance: NITROFURANTOIN
  28. WARFARIN [Concomitant]
     Active Substance: WARFARIN
  29. ONDANSETRON [Concomitant]
     Active Substance: ONDANSETRON
  30. PRAVASTINE [Concomitant]
     Active Substance: PRAVASTATIN SODIUM
  31. PROVENTIL [Concomitant]
     Active Substance: ALBUTEROL
  32. AMITRIPTYLIN [Concomitant]
     Active Substance: AMITRIPTYLINE
  33. CALCIUM D [Concomitant]
     Active Substance: CALCIUM\VITAMIN D
  34. HYDROCODONE BITARTRATE AND ACETAMINOPHEN [Concomitant]
     Active Substance: ACETAMINOPHEN\HYDROCODONE BITARTRATE
  35. NIFEDIPINE. [Concomitant]
     Active Substance: NIFEDIPINE
  36. SUCRALFATE. [Concomitant]
     Active Substance: SUCRALFATE
  37. SILDENAFIL. [Concomitant]
     Active Substance: SILDENAFIL

REACTIONS (3)
  - Cerebral haemorrhage [Not Recovered/Not Resolved]
  - Death [Fatal]
  - Fall [Not Recovered/Not Resolved]

NARRATIVE: CASE EVENT DATE: 20190719
